FAERS Safety Report 8110690-8 (Version None)
Quarter: 2012Q1

REPORT INFORMATION
  Report Type: 
  Country: None (occurrence: None)
  Receive Date: 20120203
  Receipt Date: 20120127
  Transmission Date: 20120608
  Serious: Yes (Hospitalization, Other)
  Sender: FDA-Public Use
  Company Number: US-BAYER-2011-049733

PATIENT
  Age: 23 Year
  Sex: Female
  Weight: 86.168 kg

DRUGS (4)
  1. YASMIN [Suspect]
     Dosage: UNK
     Dates: start: 20061114, end: 20100220
  2. NAPROXEN [Concomitant]
  3. YAZ [Suspect]
     Dosage: UNK
     Dates: start: 20061114, end: 20100220
  4. MOTRIM [Concomitant]

REACTIONS (7)
  - ANHEDONIA [None]
  - ANXIETY [None]
  - JUGULAR VEIN THROMBOSIS [None]
  - PAIN [None]
  - NEUROLOGICAL SYMPTOM [None]
  - INJURY [None]
  - INTRACRANIAL VENOUS SINUS THROMBOSIS [None]
